FAERS Safety Report 25836473 (Version 1)
Quarter: 2025Q3

REPORT INFORMATION
  Report Type: Spontaneous
  Country: US (occurrence: None)
  Receive Date: 20250922
  Receipt Date: 20250922
  Transmission Date: 20251020
  Serious: No
  Sender: FDA-CTU
  Company Number: None

PATIENT
  Age: 80 Year
  Sex: Female
  Weight: 84.15 kg

DRUGS (1)
  1. SILDENAFIL [Suspect]
     Active Substance: SILDENAFIL
     Indication: Neurodermatitis
     Dosage: FREQUENCY : DAILY;?
     Route: 048

REACTIONS (3)
  - Burning sensation [None]
  - Myositis [None]
  - Drug ineffective [None]

NARRATIVE: CASE EVENT DATE: 20250922
